FAERS Safety Report 9210690 (Version 2)
Quarter: 2013Q2

REPORT INFORMATION
  Report Type: Spontaneous
  Country: US (occurrence: US)
  Receive Date: 20130404
  Receipt Date: 20130425
  Transmission Date: 20140414
  Serious: No
  Sender: FDA-Public Use
  Company Number: US-GLAXOSMITHKLINE-A1016287A

PATIENT
  Age: 36 Year
  Sex: Female

DRUGS (2)
  1. FLOLAN [Suspect]
     Indication: COR PULMONALE CHRONIC
     Dosage: 21NGKM CONTINUOUS
     Route: 065
     Dates: start: 20110723
  2. REVATIO [Concomitant]

REACTIONS (2)
  - Refusal of treatment by patient [Unknown]
  - Treatment noncompliance [Unknown]
